FAERS Safety Report 4305889-2 (Version None)
Quarter: 2004Q1

REPORT INFORMATION
  Report Type: 
  Country: None (occurrence: None)
  Receive Date: 20040226
  Receipt Date: 20040218
  Transmission Date: 20041129
  Serious: Yes (Hospitalization, Disabling)
  Sender: FDA-Public Use
  Company Number: WAES 0402USA01401

PATIENT
  Age: 38 Year
  Sex: Male

DRUGS (3)
  1. BIAXIN [Concomitant]
  2. ADVAIR DISKUS 100/50 [Concomitant]
     Indication: ASTHMA
  3. SINGULAIR [Suspect]
     Indication: ASTHMA
     Route: 048
     Dates: start: 20040113, end: 20040206

REACTIONS (4)
  - ALLERGIC GRANULOMATOUS ANGIITIS [None]
  - EYE DISORDER [None]
  - INFLUENZA LIKE ILLNESS [None]
  - PARAESTHESIA [None]
